FAERS Safety Report 7484117-3 (Version None)
Quarter: 2011Q2

REPORT INFORMATION
  Report Type: 
  Country: None (occurrence: None)
  Receive Date: 20110517
  Receipt Date: 20100319
  Transmission Date: 20111010
  Serious: Yes (Hospitalization, Other)
  Sender: FDA-Public Use
  Company Number: US-BAYER-201016716NA

PATIENT
  Age: 54 Year
  Sex: Female
  Weight: 73 kg

DRUGS (17)
  1. LOTREL [Concomitant]
     Dosage: 5/20 MG DAILY
     Route: 048
     Dates: start: 20020101
  2. TRICOR [Concomitant]
     Dosage: 67 MG, UNK
     Route: 048
  3. CIPRO [Concomitant]
     Dosage: 500 MG, BID
     Route: 048
  4. LOPRIL [CAPTOPRIL] [Concomitant]
     Dosage: UNK
     Route: 048
     Dates: start: 19950101
  5. INSULIN [Concomitant]
     Dosage: UNK
  6. ATIVAN [Concomitant]
     Dosage: UNK
     Route: 048
     Dates: start: 20020101
  7. DIOVAN [Concomitant]
     Dosage: UNK
     Route: 048
     Dates: start: 20020101
  8. GLUCOPHAGE [Concomitant]
     Dosage: UNK
     Route: 048
  9. ADVIL LIQUI-GELS [Concomitant]
  10. NOVOLOG [Concomitant]
     Dosage: UNK
     Route: 058
     Dates: start: 20000101
  11. TRASYLOL [Suspect]
     Indication: CARDIAC PACEMAKER INSERTION
     Dosage: UNK
     Dates: start: 20040401
  12. SPIRONOLACTONE [Concomitant]
     Dosage: UNK
     Route: 048
     Dates: start: 20020101
  13. ZESTRIL [Concomitant]
     Dosage: 20 MG, UNK
     Route: 048
  14. HYDROCHLOROTHIAZIDE [Concomitant]
     Dosage: 75/50MG
     Route: 048
  15. TRIAMTERENE AND HYDROCHLOROTHIAZIDE [Concomitant]
     Dosage: 75/50 MG DAILY
     Route: 048
  16. PERCOCET [Concomitant]
     Dosage: PRN
     Dates: start: 20000101
  17. XANAX [Concomitant]
     Dosage: 0.5 MG, UNK
     Route: 048

REACTIONS (12)
  - MULTI-ORGAN FAILURE [None]
  - ANXIETY [None]
  - UNEVALUABLE EVENT [None]
  - PAIN [None]
  - RENAL FAILURE [None]
  - INJURY [None]
  - STRESS [None]
  - RENAL INJURY [None]
  - RENAL IMPAIRMENT [None]
  - EMOTIONAL DISTRESS [None]
  - FEAR [None]
  - DEPRESSION [None]
